FAERS Safety Report 8521351-5 (Version None)
Quarter: 2012Q3

REPORT INFORMATION
  Report Type: 
  Country: None (occurrence: None)
  Receive Date: 20120719
  Receipt Date: 20120710
  Transmission Date: 20120928
  Serious: Yes (Other)
  Sender: FDA-Public Use
  Company Number: CN-JNJFOC-20120707249

PATIENT
  Age: 43 Year
  Sex: Female

DRUGS (3)
  1. ACETAMINOPHEN [Suspect]
     Indication: ABDOMINAL PAIN
     Route: 065
  2. AN UNKNOWN MEDICATION [Interacting]
     Indication: SARCOMA UTERUS
     Route: 017
  3. ACETAMINOPHEN [Suspect]
     Route: 065

REACTIONS (4)
  - ASCITES [None]
  - DRUG INTERACTION [None]
  - RENAL FAILURE ACUTE [None]
  - PLEURAL EFFUSION [None]
